FAERS Safety Report 25610007 (Version 2)
Quarter: 2025Q3

REPORT INFORMATION
  Report Type: Report from Study
  Country: US (occurrence: US)
  Receive Date: 20250728
  Receipt Date: 20250801
  Transmission Date: 20251020
  Serious: Yes (Hospitalization, Other)
  Sender: ABBVIE
  Company Number: US-ABBVIE-6387218

PATIENT
  Age: 33 Year
  Sex: Male

DRUGS (1)
  1. RINVOQ [Suspect]
     Active Substance: UPADACITINIB
     Indication: Rheumatoid arthritis
     Route: 048
     Dates: start: 20250612, end: 20250718

REACTIONS (3)
  - Stoma creation [Unknown]
  - Drain placement [Unknown]
  - Infection [Unknown]

NARRATIVE: CASE EVENT DATE: 20250101
